FAERS Safety Report 4873078-9 (Version None)
Quarter: 2006Q1

REPORT INFORMATION
  Report Type: 
  Country: None (occurrence: None)
  Receive Date: 20060104
  Receipt Date: 20060104
  Transmission Date: 20060701
  Serious: Yes (Hospitalization)
  Sender: FDA-Public Use
  Company Number: None

PATIENT
  Age: 13 Year
  Sex: Female

DRUGS (5)
  1. CLINDAMYCIN [Suspect]
     Indication: WOUND INFECTION
     Dosage: 450MG   Q8H   IV
     Route: 042
     Dates: start: 20050920, end: 20050924
  2. CLINDAMYCIN [Suspect]
     Indication: ACNE
     Dosage: 1 DAB  QAM   TOP
     Route: 061
     Dates: start: 20050922, end: 20050923
  3. ADAPALENE [Concomitant]
  4. CEFEPIME [Concomitant]
  5. BACTRIM [Concomitant]

REACTIONS (4)
  - BURNING SENSATION [None]
  - RASH [None]
  - RASH ERYTHEMATOUS [None]
  - RASH MACULAR [None]
